FAERS Safety Report 9475096 (Version 4)
Quarter: 2014Q1

REPORT INFORMATION
  Report Type: Spontaneous
  Country: US (occurrence: US)
  Receive Date: 20130824
  Receipt Date: 20140123
  Transmission Date: 20141002
  Serious: Yes (Other)
  Sender: FDA-Public Use
  Company Number: US-009507513-1308USA007433

PATIENT
  Sex: Male
  Weight: 68.93 kg

DRUGS (3)
  1. PEGINTRON [Suspect]
     Indication: HEPATITIS C
     Dosage: REDIPEN
     Dates: start: 20130807
  2. REBETOL [Suspect]
     Indication: HEPATITIS C
     Dosage: UNK
     Route: 048
     Dates: start: 20130807
  3. PROZAC [Concomitant]
     Dosage: 20 MG, QD
     Dates: start: 2013

REACTIONS (12)
  - Depression [Not Recovered/Not Resolved]
  - Injection site erythema [Unknown]
  - Pain [Not Recovered/Not Resolved]
  - Anxiety [Unknown]
  - Memory impairment [Unknown]
  - Malaise [Unknown]
  - Nausea [Unknown]
  - Vomiting [Unknown]
  - Weight decreased [Unknown]
  - Alopecia [Unknown]
  - Influenza like illness [Unknown]
  - Insomnia [Unknown]
